FAERS Safety Report 5378231-6 (Version None)
Quarter: 2007Q3

REPORT INFORMATION
  Report Type: 
  Country: None (occurrence: None)
  Receive Date: 20070705
  Receipt Date: 20070628
  Transmission Date: 20080115
  Serious: Yes (Hospitalization)
  Sender: FDA-Public Use
  Company Number: US-ELI_LILLY_AND_COMPANY-US200706006337

PATIENT
  Age: 35 Year
  Sex: Female

DRUGS (4)
  1. ZYPREXA [Suspect]
     Indication: BIPOLAR DISORDER
     Dosage: 40 MG, DAILY (1/D)
     Dates: start: 20030101, end: 20070628
  2. FLUOXETINE [Concomitant]
     Dosage: 60 MG, DAILY (1/D)
  3. AMBIEN [Concomitant]
     Indication: SLEEP DISORDER
     Dosage: UNK, AS NEEDED
  4. COGENTIN [Concomitant]
     Indication: MUSCULOSKELETAL STIFFNESS
     Dosage: UNK, AS NEEDED

REACTIONS (3)
  - BIPOLAR DISORDER [None]
  - DRUG EXPOSURE DURING PREGNANCY [None]
  - OVERDOSE [None]
